FAERS Safety Report 12548856 (Version 3)
Quarter: 2016Q3

REPORT INFORMATION
  Report Type: Spontaneous
  Country: NL (occurrence: NL)
  Receive Date: 20160712
  Receipt Date: 20160831
  Transmission Date: 20161109
  Serious: Yes (Other)
  Sender: FDA-Public Use
  Company Number: NL-AUROBINDO-AUR-APL-2016-08970

PATIENT
  Age: 75 Year
  Sex: Female

DRUGS (2)
  1. IRBESARTAN AUROBINDO, TABLET 300MG [Suspect]
     Active Substance: IRBESARTAN
     Indication: HYPERTENSION
     Dosage: 1 TAB/DAY
     Route: 065
     Dates: start: 20160501
  2. VERAPAMIL [Concomitant]
     Active Substance: VERAPAMIL HYDROCHLORIDE
     Indication: PRODUCT USED FOR UNKNOWN INDICATION
     Dosage: 120 MG, UNK

REACTIONS (4)
  - Product substitution issue [Not Recovered/Not Resolved]
  - Dizziness [Not Recovered/Not Resolved]
  - Concussion [Unknown]
  - Fatigue [Not Recovered/Not Resolved]
